FAERS Safety Report 8862760 (Version 1)
Quarter: 2012Q4

REPORT INFORMATION
  Report Type: 
  Country: US (occurrence: US)
  Receive Date: 20121026
  Receipt Date: 20121026
  Transmission Date: 20130627
  Serious: No
  Sender: FDA-Public Use
  Company Number: US-ALLERGAN-1209168US

PATIENT
  Age: 60 Year
  Sex: Female

DRUGS (4)
  1. ALPHAGAN P [Suspect]
     Indication: GLAUCOMA
     Dosage: 2 Gtt, bid
     Route: 047
     Dates: start: 201109
  2. LUMIGAN [Concomitant]
     Indication: GLAUCOMA
     Dosage: 2 Gtt, qhs
     Route: 047
  3. ZYPREXA [Concomitant]
     Indication: SCHIZOPHRENIA
     Dosage: UNK
     Route: 048
  4. IMIPRAMINE [Suspect]
     Indication: DEPRESSION
     Dosage: UNK
     Route: 048
     Dates: start: 1987

REACTIONS (8)
  - Eye discharge [Unknown]
  - Eye discharge [Unknown]
  - Eye swelling [Unknown]
  - Dry eye [Unknown]
  - Eye pruritus [Unknown]
  - Conjunctivitis [Unknown]
  - Ocular hyperaemia [Unknown]
  - Eye pain [Unknown]
